FAERS Safety Report 12177580 (Version 3)
Quarter: 2016Q3

REPORT INFORMATION
  Report Type: Spontaneous
  Country: JP (occurrence: JP)
  Receive Date: 20160315
  Receipt Date: 20160912
  Transmission Date: 20161109
  Serious: Yes (Hospitalization, Other)
  Sender: FDA-Public Use
  Company Number: JP-009507513-1603JPN002858

PATIENT
  Age: 21 Year
  Sex: Male
  Weight: 75 kg

DRUGS (19)
  1. ESLAX [Suspect]
     Active Substance: ROCURONIUM BROMIDE
     Dosage: 15 MG, QD
     Route: 042
     Dates: start: 20150109, end: 20150109
  2. CEFAZOLIN SODIUM. [Suspect]
     Active Substance: CEFAZOLIN SODIUM
     Dosage: 1 G, QD
     Route: 041
     Dates: start: 20150109, end: 20150109
  3. FAMOTIDINE. [Suspect]
     Active Substance: FAMOTIDINE
     Dosage: 20 MG, QD
     Route: 042
     Dates: start: 20150109, end: 20150109
  4. GABEXATE MESYLATE [Suspect]
     Active Substance: GABEXATE MESYLATE
     Dosage: DAILY DOSE UNKNOWN
     Route: 041
     Dates: start: 20150109, end: 20150109
  5. SEVOFLURANE. [Suspect]
     Active Substance: SEVOFLURANE
     Dosage: DAILY DOSE UNKNOWN
     Route: 065
     Dates: start: 20150109, end: 20150109
  6. FENTANYL CITRATE. [Concomitant]
     Active Substance: FENTANYL CITRATE
     Dosage: 150 MICROGRAM, QD
     Route: 042
     Dates: start: 20150109, end: 20150109
  7. NOREPINEPHRINE [Concomitant]
     Active Substance: NOREPINEPHRINE\NOREPINEPHRINE BITARTRATE
     Dosage: DAILY DOSE UNKNOWN
     Route: 051
  8. VECURONIUM BROMIDE. [Concomitant]
     Active Substance: VECURONIUM BROMIDE
     Dosage: DAILY DOSE UNKNOWN
     Route: 051
  9. ESLAX [Suspect]
     Active Substance: ROCURONIUM BROMIDE
     Indication: NEUROMUSCULAR BLOCKING THERAPY
     Dosage: 50 MG, QD
     Route: 042
     Dates: start: 20150109, end: 20150109
  10. ULINASTATIN [Suspect]
     Active Substance: ULINASTATIN
     Dosage: 100000 U, QD
     Route: 042
     Dates: start: 20150109, end: 20150109
  11. LIDOCAINE. [Concomitant]
     Active Substance: LIDOCAINE
     Dosage: DAILY DOSE UNKNOWN
     Route: 065
  12. EPHEDRINE HYDROCHLORIDE [Concomitant]
     Active Substance: EPHEDRINE HYDROCHLORIDE
     Dosage: DAILY DOSE UNKNOWN
     Route: 065
  13. AMPICILLIN AND SULBACTAM [Concomitant]
     Active Substance: AMPICILLIN SODIUM\SULBACTAM SODIUM
     Dosage: DAILY DOSE UNKNOWN
     Route: 051
  14. ULTIVA [Suspect]
     Active Substance: REMIFENTANIL HYDROCHLORIDE
     Dosage: DAILY DOSE UNKNOWN
     Route: 051
     Dates: start: 20150109, end: 20150109
  15. METHYLPREDNISOLONE SODIUM SUCCINATE. [Suspect]
     Active Substance: METHYLPREDNISOLONE SODIUM SUCCINATE
     Dosage: 250 MG, QD
     Route: 042
     Dates: start: 20150109, end: 20150109
  16. SUXAMETHONIUM CHLORIDE FRESENIUS [Concomitant]
     Active Substance: SUCCINYLCHOLINE
     Dosage: DAILY DOSE UNKNOWN
     Route: 051
  17. DOPAMINE HYDROCHLORIDE. [Concomitant]
     Active Substance: DOPAMINE HYDROCHLORIDE
     Dosage: DAILY DOSE UNKNOWN
     Route: 065
  18. MEPIVACAINE HYDROCHLORIDE. [Concomitant]
     Active Substance: MEPIVACAINE HYDROCHLORIDE
     Dosage: DAILY DOSE UNKNOWN
     Route: 065
  19. PROPOFOL. [Concomitant]
     Active Substance: PROPOFOL
     Dosage: 100 MG, QD
     Route: 042
     Dates: start: 20150109, end: 20150109

REACTIONS (1)
  - Anaphylactic shock [Recovering/Resolving]

NARRATIVE: CASE EVENT DATE: 20150109
